FAERS Safety Report 12113479 (Version 1)
Quarter: 2016Q1

REPORT INFORMATION
  Report Type: Spontaneous
  Country: US (occurrence: None)
  Receive Date: 20160224
  Receipt Date: 20160224
  Transmission Date: 20160526
  Serious: Yes (Other)
  Sender: FDA-Public Use
  Company Number: None

PATIENT
  Age: 80 Year
  Sex: Male

DRUGS (1)
  1. MYCOPHENOLAT 250 MG [Suspect]
     Active Substance: MYCOPHENOLATE MOFETIL
     Indication: RENAL TRANSPLANT
     Route: 048
     Dates: start: 201309

REACTIONS (4)
  - Arthralgia [None]
  - Myalgia [None]
  - Fatigue [None]
  - Pain in extremity [None]

NARRATIVE: CASE EVENT DATE: 20160202
